FAERS Safety Report 26126590 (Version 3)
Quarter: 2025Q4

REPORT INFORMATION
  Report Type: Report from Study
  Country: US (occurrence: US)
  Receive Date: 20251205
  Receipt Date: 20251217
  Transmission Date: 20260118
  Serious: No
  Sender: PFIZER
  Company Number: US-PFIZER INC-202500236861

PATIENT
  Age: 6 Year
  Sex: Female

DRUGS (2)
  1. GENOTROPIN [Suspect]
     Active Substance: SOMATROPIN
     Indication: Short stature
     Dosage: 0.5 MG, DAILY
  2. GENOTROPIN [Suspect]
     Active Substance: SOMATROPIN
     Indication: Silver-Russell syndrome
     Dosage: 0.7 MG/DAY 7 DAYS/WEEK

REACTIONS (4)
  - Drug dose omission by device [Unknown]
  - Device material issue [Unknown]
  - Device mechanical issue [Unknown]
  - Device use error [Unknown]

NARRATIVE: CASE EVENT DATE: 20251130
